FAERS Safety Report 8333313-1 (Version None)
Quarter: 2012Q2

REPORT INFORMATION
  Report Type: 
  Country: None (occurrence: None)
  Receive Date: 20120503
  Receipt Date: 20120423
  Transmission Date: 20120825
  Serious: Yes (Other)
  Sender: FDA-Public Use
  Company Number: US-SANOFI-AVENTIS-2012SA023984

PATIENT
  Sex: Male
  Weight: 84.8 kg

DRUGS (2)
  1. ALLEGRA [Suspect]
     Route: 048
     Dates: start: 20120404, end: 20120404
  2. ALLEGRA [Suspect]
     Route: 048

REACTIONS (6)
  - FLUSHING [None]
  - PRURITUS [None]
  - RASH [None]
  - HEADACHE [None]
  - VIOLENCE-RELATED SYMPTOM [None]
  - ANXIETY [None]
